FAERS Safety Report 4692109-2 (Version None)
Quarter: 2005Q2

REPORT INFORMATION
  Report Type: 
  Country: None (occurrence: None)
  Receive Date: 20050614
  Receipt Date: 20050603
  Transmission Date: 20051028
  Serious: Yes (Other)
  Sender: FDA-Public Use
  Company Number: 2005013308

PATIENT
  Sex: Male

DRUGS (3)
  1. XALATAN [Suspect]
     Indication: GLAUCOMA
     Dosage: INTRAOCULAR
     Route: 031
  2. COSOPT (DORZOLAMIDE HYDROCHLORIDE) [Concomitant]
  3. ALPHAGAN [Concomitant]

REACTIONS (2)
  - CATARACT OPERATION [None]
  - LENS IMPLANT [None]
